FAERS Safety Report 8391213-5 (Version None)
Quarter: 2012Q1

REPORT INFORMATION
  Report Type: 
  Country: None (occurrence: None)
  Receive Date: 20120323
  Receipt Date: 20110328
  Transmission Date: 20120608
  Serious: Yes (Hospitalization)
  Sender: FDA-Public Use
  Company Number: 163-21880-11033264

PATIENT
  Age: 74 Year
  Sex: Female

DRUGS (10)
  1. ZOMETA [Concomitant]
  2. REVLIMID [Suspect]
     Indication: MULTIPLE MYELOMA
     Dosage: 25 MG, DAILY FOR 21 DAYS, PO
     Route: 048
     Dates: start: 20110110
  3. PERCOCET [Concomitant]
  4. POTASSIUM CHLORIDE [Concomitant]
  5. COLACE (DOCUSATE SODIUM) [Concomitant]
  6. ATENOLOL [Concomitant]
  7. DEXAMETHASONE [Concomitant]
  8. LEVOTHYROXINE SODIUM [Concomitant]
  9. ESTRADIOL [Concomitant]
  10. XANAX [Concomitant]

REACTIONS (1)
  - TRANSIENT ISCHAEMIC ATTACK [None]
